FAERS Safety Report 9612089 (Version 1)
Quarter: 2013Q4

REPORT INFORMATION
  Report Type: Spontaneous
  Country: FR (occurrence: FR)
  Receive Date: 20131010
  Receipt Date: 20131010
  Transmission Date: 20140711
  Serious: Yes (Death)
  Sender: FDA-Public Use
  Company Number: FR-ASTRAZENECA-2013SE74518

PATIENT
  Age: 80 Year
  Sex: Male

DRUGS (7)
  1. INEXIUM [Suspect]
     Route: 048
  2. PROPYLTHIOURACIL [Suspect]
     Indication: HYPERTHYROIDISM
     Route: 048
     Dates: start: 20130710, end: 20130801
  3. FOSINOPRIL [Suspect]
     Route: 048
  4. CARDENSIEL [Suspect]
     Route: 048
  5. LASILIX [Suspect]
     Route: 048
  6. IMOVANE [Suspect]
     Route: 048
  7. PROCORALAN [Suspect]
     Route: 048

REACTIONS (1)
  - Agranulocytosis [Fatal]
